FAERS Safety Report 26049268 (Version 1)
Quarter: 2025Q4

REPORT INFORMATION
  Report Type: Spontaneous
  Country: EU (occurrence: EU)
  Receive Date: 20251115
  Receipt Date: 20251115
  Transmission Date: 20260118
  Serious: Yes (Life-Threatening, Other)
  Sender: MACLEODS
  Company Number: EU-MACLEODS PHARMA-MAC2025056322

PATIENT

DRUGS (2)
  1. LIDOCAINE [Suspect]
     Active Substance: LIDOCAINE
     Indication: Local anaesthesia
     Dosage: ONTO HER LEGS (ESTIMATED AREA 2068 CM2) FOR 2 H, 1,375 MG
     Route: 061
  2. PRILOCAINE [Suspect]
     Active Substance: PRILOCAINE
     Indication: Local anaesthesia
     Dosage: 55 G OF EMLP ONTO HER LEGS (ESTIMATED AREA 2068 CM2) FOR 2 H
     Route: 061

REACTIONS (5)
  - Local anaesthetic systemic toxicity [Recovered/Resolved]
  - Cyanosis [Recovered/Resolved]
  - Toxicity to various agents [Unknown]
  - Methaemoglobinaemia [Recovered/Resolved]
  - Overdose [Unknown]
